FAERS Safety Report 7850444-0 (Version None)
Quarter: 2011Q4

REPORT INFORMATION
  Report Type: 
  Country: None (occurrence: None)
  Receive Date: 20111026
  Receipt Date: 20111026
  Transmission Date: 20120403
  Serious: Yes (Life-Threatening)
  Sender: FDA-Public Use
  Company Number: None

PATIENT
  Age: 47 Year
  Sex: Male
  Weight: 125 kg

DRUGS (1)
  1. HEPARIN [Suspect]
     Indication: PULMONARY EMBOLISM
     Dosage: 2150 UNITS/HOUR
     Route: 041
     Dates: start: 20111010, end: 20111018

REACTIONS (1)
  - HEPARIN-INDUCED THROMBOCYTOPENIA [None]
